FAERS Safety Report 25492928 (Version 1)
Quarter: 2025Q2

REPORT INFORMATION
  Report Type: Spontaneous
  Country: US (occurrence: US)
  Receive Date: 20250630
  Receipt Date: 20250630
  Transmission Date: 20250716
  Serious: No
  Sender: UCB
  Company Number: US-UCBSA-2025004046

PATIENT
  Age: 38 Year
  Sex: Female
  Weight: 114 kg

DRUGS (9)
  1. MIDAZOLAM [Suspect]
     Active Substance: MIDAZOLAM
     Indication: General anaesthesia
  2. MIDAZOLAM [Suspect]
     Active Substance: MIDAZOLAM
     Indication: Off label use
  3. ASPIRIN [Concomitant]
     Active Substance: ASPIRIN
     Indication: Prophylaxis
  4. HEPARIN [Concomitant]
     Active Substance: HEPARIN SODIUM
     Indication: Angina pectoris
     Route: 042
  5. NITROGLYCERIN [Concomitant]
     Active Substance: NITROGLYCERIN
     Indication: Angina pectoris
  6. PROPOFOL [Concomitant]
     Active Substance: PROPOFOL
     Indication: General anaesthesia
  7. FENTANYL [Concomitant]
     Active Substance: FENTANYL
     Indication: General anaesthesia
  8. ROCURONIUM [Concomitant]
     Active Substance: ROCURONIUM BROMIDE
     Indication: General anaesthesia
  9. ISOFLURANE [Concomitant]
     Active Substance: ISOFLURANE
     Indication: General anaesthesia

REACTIONS (1)
  - No adverse event [Unknown]
